FAERS Safety Report 8784439 (Version 1)
Quarter: 2012Q4

REPORT INFORMATION
  Report Type: Spontaneous
  Country: US (occurrence: None)
  Receive Date: 20120830
  Receipt Date: 20120830
  Transmission Date: 20130627
  Serious: Yes (Life-Threatening)
  Sender: FDA-Public Use
  Company Number: 001333306A

PATIENT
  Age: 16 Year
  Sex: Female

DRUGS (5)
  1. PROACTIV RENEWING CLEANSER [Suspect]
     Indication: ACNE
     Dosage: used once daily dermal
     Route: 061
     Dates: start: 20120513
  2. PROACTIVE REPAIRING TREATMENT [Suspect]
     Indication: ACNE
     Dosage: used once daily dermal
     Route: 061
     Dates: start: 20120513
  3. PROACTIV REFINING MASK [Suspect]
     Indication: ACNE
     Dosage: used once daily dermal
     Route: 061
     Dates: start: 20120513
  4. OIL FREE MOISTURIZER SPF [Suspect]
     Indication: ACNE
     Dosage: used once daily dermal
     Dates: start: 20120513
  5. MULTIVITAMINS DAILY [Concomitant]

REACTIONS (3)
  - Urticaria [None]
  - Lip swelling [None]
  - Dyspnoea [None]
